FAERS Safety Report 18978531 (Version 2)
Quarter: 2022Q2

REPORT INFORMATION
  Report Type: Other
  Country: US (occurrence: None)
  Receive Date: 20210307
  Receipt Date: 20220608
  Transmission Date: 20220720
  Serious: Yes (Disabling)
  Sender: FDA-Public Use
  Company Number: US-ROCHE-2778500

PATIENT
  Sex: Male

DRUGS (1)
  1. ACTEMRA [Suspect]
     Active Substance: TOCILIZUMAB
     Indication: Giant cell arteritis
     Dosage: NEXT DATE OF TREATMENT ON 25/AUG/2018
     Route: 058

REACTIONS (2)
  - Hypoacusis [Unknown]
  - Middle ear inflammation [Unknown]
